FAERS Safety Report 21047909 (Version 3)
Quarter: 2023Q2

REPORT INFORMATION
  Report Type: Spontaneous
  Country: JP (occurrence: JP)
  Receive Date: 20220706
  Receipt Date: 20230406
  Transmission Date: 20230722
  Serious: Yes (Death, Life-Threatening, Other)
  Sender: FDA-Public Use
  Company Number: JP-JAZZ-2022-JP-022227

PATIENT
  Age: 52 Year
  Sex: Female
  Weight: 52.3 kg

DRUGS (2)
  1. DEFITELIO [Suspect]
     Active Substance: DEFIBROTIDE SODIUM
     Indication: Venoocclusive liver disease
     Dosage: UNK
     Route: 042
     Dates: start: 20220615, end: 20220617
  2. DEFITELIO [Suspect]
     Active Substance: DEFIBROTIDE SODIUM
     Dosage: 25 MILLIGRAM/KILOGRAM
     Route: 042
     Dates: start: 20220615, end: 20220617

REACTIONS (3)
  - Post transplant lymphoproliferative disorder [Fatal]
  - Hypotension [Not Recovered/Not Resolved]
  - Purpura [Not Recovered/Not Resolved]

NARRATIVE: CASE EVENT DATE: 20220616
